FAERS Safety Report 6640144-7 (Version None)
Quarter: 2010Q1

REPORT INFORMATION
  Report Type: 
  Country: None (occurrence: None)
  Receive Date: 20100318
  Receipt Date: 20100310
  Transmission Date: 20100710
  Serious: Yes (Death, Other)
  Sender: FDA-Public Use
  Company Number: IN-BAXTER-2010BH003184

PATIENT
  Age: 58 Year
  Sex: Male

DRUGS (1)
  1. DIANEAL [Suspect]
     Indication: PERITONEAL DIALYSIS
     Route: 033
     Dates: start: 20100101, end: 20100217

REACTIONS (3)
  - CARDIAC ARREST [None]
  - PERITONITIS [None]
  - ULTRAFILTRATION FAILURE [None]
